FAERS Safety Report 26099044 (Version 4)
Quarter: 2025Q4

REPORT INFORMATION
  Report Type: Report from Study
  Country: US (occurrence: US)
  Receive Date: 20251128
  Receipt Date: 20251214
  Transmission Date: 20260118
  Serious: Yes (Hospitalization)
  Sender: JOHNSON AND JOHNSON
  Company Number: US-JNJFOC-20251168881

PATIENT
  Age: 5 Decade
  Sex: Female
  Weight: 83.007 kg

DRUGS (3)
  1. VELETRI [Suspect]
     Active Substance: EPOPROSTENOL
     Indication: Pulmonary arterial hypertension
     Dosage: VELETRI 1.5MG VIAL INTRAVENOUS
     Route: 042
  2. OPSUMIT [Concomitant]
     Active Substance: MACITENTAN
     Indication: Product used for unknown indication
  3. TADALAFIL [Concomitant]
     Active Substance: TADALAFIL
     Indication: Product used for unknown indication

REACTIONS (5)
  - Device occlusion [Unknown]
  - Pneumonia [Unknown]
  - Lung transplant [Unknown]
  - Cardiac output increased [Unknown]
  - Underdose [Unknown]

NARRATIVE: CASE EVENT DATE: 20250101
